FAERS Safety Report 4455615-1 (Version None)
Quarter: 2004Q3

REPORT INFORMATION
  Report Type: 
  Country: None (occurrence: None)
  Receive Date: 20040917
  Receipt Date: 20040827
  Transmission Date: 20050211
  Serious: Yes (Hospitalization)
  Sender: FDA-Public Use
  Company Number: EWC040840410

PATIENT
  Age: 70 Year
  Sex: Female
  Weight: 110 kg

DRUGS (4)
  1. GEMCITABINE HYDROCHLORIDE-IV (GEMCITABINE) [Suspect]
     Indication: LUNG SQUAMOUS CELL CARCINOMA STAGE UNSPECIFIED
     Dosage: 1600 MG/2 OTHER
     Dates: start: 20040308
  2. CARBOPLATIN [Concomitant]
  3. AMOXICILLIN AND CLAVULANATE POTASSIUM [Concomitant]
  4. ACETAMINOPHEN [Concomitant]

REACTIONS (7)
  - BLOOD ALBUMIN DECREASED [None]
  - CHOLESTASIS [None]
  - CONDITION AGGRAVATED [None]
  - GENERAL PHYSICAL HEALTH DETERIORATION [None]
  - HEPATIC FAILURE [None]
  - HEPATOTOXICITY [None]
  - PROTHROMBIN TIME PROLONGED [None]
